FAERS Safety Report 4704785-6 (Version None)
Quarter: 2005Q2

REPORT INFORMATION
  Report Type: 
  Country: None (occurrence: None)
  Receive Date: 20050630
  Receipt Date: 20050616
  Transmission Date: 20051028
  Serious: Yes (Other)
  Sender: FDA-Public Use
  Company Number: 215240

PATIENT
  Age: 77 Year
  Sex: Female
  Weight: 42 kg

DRUGS (11)
  1. RITUXAN [Suspect]
     Indication: NON-HODGKIN'S LYMPHOMA
     Dosage: 500 MG, IV DRIP
     Route: 041
     Dates: start: 20040414, end: 20040913
  2. CYCLOPHOSPHAMIDE [Concomitant]
  3. DOXORUBICIN HCL [Concomitant]
  4. VINCRISTINE [Concomitant]
  5. PREDNISONE [Concomitant]
  6. VENA (DIPHENHYDRAMINE HYDROCHLORIDE) [Concomitant]
  7. CALONAL (ACETAMINOPHEN) [Concomitant]
  8. MAGNESIUM OXIDE (MAGNESIUM OXIDE) [Concomitant]
  9. MUCOSTA (REBAMIPIDE) [Concomitant]
  10. LECICARBON (SODIUM PHOSPHATE, MONOBASIC, SODIUM BICARBONATE, LETHICIN) [Concomitant]
  11. AMOBAN (ZOPICLONE) [Concomitant]

REACTIONS (9)
  - ANAEMIA [None]
  - BASOPHIL PERCENTAGE INCREASED [None]
  - BLOOD ALKALINE PHOSPHATASE INCREASED [None]
  - BLOOD LACTATE DEHYDROGENASE INCREASED [None]
  - BLOOD PRESSURE ABNORMAL [None]
  - GRANULOCYTE COUNT DECREASED [None]
  - NEUTROPHIL PERCENTAGE DECREASED [None]
  - PRURITUS [None]
  - WHITE BLOOD CELL COUNT DECREASED [None]
